FAERS Safety Report 4540976-5 (Version None)
Quarter: 2004Q4

REPORT INFORMATION
  Report Type: 
  Country: None (occurrence: None)
  Receive Date: 20041228
  Receipt Date: 20041215
  Transmission Date: 20050328
  Serious: Yes (Hospitalization)
  Sender: FDA-Public Use
  Company Number: 2004-05279

PATIENT
  Age: 75 Year
  Sex: Female

DRUGS (2)
  1. CHLORPROMAZINE [Suspect]
     Indication: DELIRIUM
     Dosage: 10 MG, DAILY, ORAL
     Route: 048
     Dates: start: 20040101
  2. CHLORPROMAZINE [Suspect]
     Indication: DEPRESSION
     Dosage: 10 MG, DAILY, ORAL
     Route: 048
     Dates: start: 20040101

REACTIONS (1)
  - DEEP VEIN THROMBOSIS [None]
